FAERS Safety Report 21725737 (Version 1)
Quarter: 2022Q4

REPORT INFORMATION
  Report Type: Report from Study
  Country: US (occurrence: US)
  Receive Date: 20221214
  Receipt Date: 20221214
  Transmission Date: 20230113
  Serious: Yes (Death, Other)
  Sender: FDA-Public Use
  Company Number: US-SUN PHARMACEUTICAL INDUSTRIES LTD-2022R1-368473

PATIENT
  Age: 55 Year
  Sex: Female

DRUGS (1)
  1. AMLODIPINE [Suspect]
     Active Substance: AMLODIPINE BESYLATE
     Indication: Product used for unknown indication
     Dosage: UNK
     Route: 065

REACTIONS (8)
  - Toxicity to various agents [Fatal]
  - Depressed level of consciousness [Unknown]
  - Metabolic acidosis [Unknown]
  - Bradycardia [Unknown]
  - Hypotension [Unknown]
  - Respiratory depression [Unknown]
  - Intestinal ischaemia [Unknown]
  - Thrombocytopenia [Unknown]
